FAERS Safety Report 14892280 (Version 1)
Quarter: 2018Q2

REPORT INFORMATION
  Report Type: Spontaneous
  Country: US (occurrence: US)
  Receive Date: 20180514
  Receipt Date: 20180514
  Transmission Date: 20180711
  Serious: No
  Sender: FDA-Public Use
  Company Number: US-UNITED THERAPEUTICS-UNT-2017-017414

PATIENT
  Sex: Female

DRUGS (7)
  1. REMODULIN [Suspect]
     Active Substance: TREPROSTINIL
     Dosage: 0.0175 ?G/KG, CONTINUING
     Route: 058
  2. ADEMPAS [Suspect]
     Active Substance: RIOCIGUAT
     Indication: PRODUCT USED FOR UNKNOWN INDICATION
     Dosage: 1 MG, TID
     Route: 065
  3. REMODULIN [Suspect]
     Active Substance: TREPROSTINIL
     Dosage: 0.0285 ?G/KG, CONTINUING
     Route: 058
  4. REMODULIN [Suspect]
     Active Substance: TREPROSTINIL
     Dosage: 0.031 ?G/KG, CONTINUING
     Route: 058
     Dates: start: 20180131
  5. REMODULIN [Suspect]
     Active Substance: TREPROSTINIL
     Dosage: 0.036 ?G/KG, CONTINUING
     Route: 058
  6. REMODULIN [Suspect]
     Active Substance: TREPROSTINIL
     Indication: PULMONARY ARTERIAL HYPERTENSION
     Dosage: 0.016 ?G/KG, CONTINUING
     Route: 058
     Dates: start: 20171116
  7. REMODULIN [Suspect]
     Active Substance: TREPROSTINIL
     Dosage: 0.0365 ?G/KG, CONTINUING
     Route: 058
     Dates: start: 20180218

REACTIONS (12)
  - Pain in jaw [Unknown]
  - Abdominal distension [Unknown]
  - Oropharyngeal pain [Unknown]
  - Dizziness [Unknown]
  - Pyrexia [Unknown]
  - Restless legs syndrome [Unknown]
  - Dyspepsia [Unknown]
  - Pain in extremity [Unknown]
  - Headache [Unknown]
  - Diarrhoea [Unknown]
  - Fatigue [Unknown]
  - Cough [Unknown]

NARRATIVE: CASE EVENT DATE: 20170103
